FAERS Safety Report 16822540 (Version 1)
Quarter: 2019Q3

REPORT INFORMATION
  Report Type: Spontaneous
  Country: US (occurrence: US)
  Receive Date: 20190918
  Receipt Date: 20190918
  Transmission Date: 20191005
  Serious: Yes (Other)
  Sender: FDA-Public Use
  Company Number: US-PFIZER INC-2019400021

PATIENT
  Age: 57 Year
  Sex: Female
  Weight: 99.77 kg

DRUGS (1)
  1. CHANTIX [Suspect]
     Active Substance: VARENICLINE TARTRATE
     Indication: SMOKING CESSATION THERAPY
     Dosage: 1 MG, 2X/DAY, [ONE IN THE MORNING AND ONE IN EVENING, PILL PACKET, TAKE AS DIRECTED ]
     Dates: end: 2016

REACTIONS (3)
  - Hypertension [Unknown]
  - Aggression [Recovering/Resolving]
  - Myocardial infarction [Recovering/Resolving]
